FAERS Safety Report 9105980 (Version 1)
Quarter: 2013Q1

REPORT INFORMATION
  Report Type: Spontaneous
  Country: FR (occurrence: FR)
  Receive Date: 20130220
  Receipt Date: 20130220
  Transmission Date: 20140127
  Serious: Yes (Other)
  Sender: FDA-Public Use
  Company Number: FR-PFIZER INC-2013062560

PATIENT
  Age: 66 Year
  Sex: Female

DRUGS (1)
  1. LYRICA [Suspect]
     Dosage: UNK

REACTIONS (8)
  - Cardiovascular disorder [Unknown]
  - Rheumatic disorder [Unknown]
  - Tendonitis [Unknown]
  - Prosthesis user [Unknown]
  - Thyroid disorder [Unknown]
  - Pain in extremity [Unknown]
  - Erythema [Unknown]
  - Myalgia [Unknown]
